FAERS Safety Report 9792318 (Version 1)
Quarter: 2014Q1

REPORT INFORMATION
  Report Type: Spontaneous
  Country: US (occurrence: US)
  Receive Date: 20140102
  Receipt Date: 20140102
  Transmission Date: 20141002
  Serious: No
  Sender: FDA-Public Use
  Company Number: US-BIOGENIDEC-2013BI122346

PATIENT
  Age: 57 Year
  Sex: Female

DRUGS (16)
  1. TECFIDERA [Suspect]
     Indication: MULTIPLE SCLEROSIS
     Route: 048
     Dates: start: 20131212
  2. LISINOPRIL-HCTZ [Concomitant]
  3. DIAZEPAM [Concomitant]
  4. TIZANIDINE HCL [Concomitant]
  5. ZONISAMIDE [Concomitant]
  6. CALCIUM [Concomitant]
  7. EQL MSM [Concomitant]
  8. FLAX SEED OIL [Concomitant]
  9. VIT D [Concomitant]
  10. NAPROXEN SOD [Concomitant]
  11. GINGKO BILOBA [Concomitant]
  12. FISH OIL [Concomitant]
  13. VIT C [Concomitant]
  14. VIT E [Concomitant]
  15. LYSINE [Concomitant]
  16. GINGER ROOT POWDER [Concomitant]

REACTIONS (5)
  - Constipation [Unknown]
  - Flushing [Unknown]
  - Nausea [Unknown]
  - Rash [Unknown]
  - Abdominal discomfort [Unknown]
